FAERS Safety Report 6658820-9 (Version None)
Quarter: 2010Q1

REPORT INFORMATION
  Report Type: 
  Country: None (occurrence: None)
  Receive Date: 20100330
  Receipt Date: 20100325
  Transmission Date: 20100710
  Serious: Yes (Other)
  Sender: FDA-Public Use
  Company Number: GB-B.I. PHARMACEUTICALS,INC./RIDGEFIELD-2010-UK-00289UK

PATIENT
  Age: 33 Year
  Sex: Female
  Weight: 65 kg

DRUGS (6)
  1. VIRAMUNE [Suspect]
     Dosage: 200 MG
     Route: 048
  2. VIRAMUNE [Suspect]
     Dosage: 400 MG
     Route: 048
     Dates: start: 20091020
  3. PNEUMOVAX 23 [Suspect]
     Indication: PROPHYLAXIS
     Route: 030
     Dates: start: 20091117, end: 20091117
  4. EFAVIRENZ [Concomitant]
     Indication: HIV INFECTION
     Dosage: 600 MG
     Route: 048
     Dates: start: 20030502, end: 20091025
  5. LAMIVUDINE [Concomitant]
     Indication: HIV INFECTION
     Dosage: 300 MG
     Route: 048
     Dates: start: 20030502
  6. TENOFOVIR [Concomitant]
     Indication: HIV INFECTION
     Dosage: 300 MG
     Route: 048
     Dates: start: 20030502

REACTIONS (5)
  - INJECTION SITE CELLULITIS [None]
  - MALAISE [None]
  - PRURITUS GENERALISED [None]
  - PYREXIA [None]
  - RASH MACULO-PAPULAR [None]
